FAERS Safety Report 4301770-3 (Version None)
Quarter: 2004Q1

REPORT INFORMATION
  Report Type: 
  Country: None (occurrence: None)
  Receive Date: 20040126
  Receipt Date: 20031006
  Transmission Date: 20041129
  Serious: No
  Sender: FDA-Public Use
  Company Number: USA031049144

PATIENT
  Age: 9 Year
  Sex: Male
  Weight: 36 kg

DRUGS (2)
  1. STRATTERA [Suspect]
     Indication: OPPOSITIONAL DEFIANT DISORDER
     Dosage: 40 MG
     Dates: start: 20030927
  2. ZYRTEC [Concomitant]

REACTIONS (4)
  - DIARRHOEA [None]
  - DYSPEPSIA [None]
  - RETCHING [None]
  - VOMITING [None]
